FAERS Safety Report 6936963-X (Version None)
Quarter: 2010Q3

REPORT INFORMATION
  Report Type: 
  Country: None (occurrence: None)
  Receive Date: 20100821
  Receipt Date: 20100821
  Transmission Date: 20110219
  Serious: Yes (Other)
  Sender: FDA-Public Use
  Company Number: None

PATIENT
  Age: 68 Year
  Sex: Female
  Weight: 56.6996 kg

DRUGS (2)
  1. DILANTIN [Suspect]
     Indication: PARTIAL SEIZURES
     Dosage: 100 MG 200 + 100
  2. LEVOXYL [Suspect]

REACTIONS (7)
  - ANTICONVULSANT DRUG LEVEL INCREASED [None]
  - DECREASED APPETITE [None]
  - DRY MOUTH [None]
  - HEADACHE [None]
  - INSOMNIA [None]
  - NEOPLASM RECURRENCE [None]
  - PAIN [None]
